FAERS Safety Report 5328347-5 (Version None)
Quarter: 2007Q2

REPORT INFORMATION
  Report Type: 
  Country: None (occurrence: None)
  Receive Date: 20070515
  Receipt Date: 20070515
  Transmission Date: 20071010
  Serious: Yes (Other)
  Sender: FDA-Public Use
  Company Number: None

PATIENT
  Age: 54 Year
  Sex: Male
  Weight: 81.6475 kg

DRUGS (1)
  1. ALLEGRA-D 12 HOUR [Suspect]
     Indication: EUSTACHIAN TUBE DYSFUNCTION
     Dosage: 1 TAB BID PO
     Route: 048
     Dates: start: 20070503, end: 20070514

REACTIONS (2)
  - MEDICATION RESIDUE [None]
  - PHARMACEUTICAL PRODUCT COMPLAINT [None]
